FAERS Safety Report 15789811 (Version 2)
Quarter: 2019Q1

REPORT INFORMATION
  Report Type: Spontaneous
  Country: US (occurrence: TW)
  Receive Date: 20190104
  Receipt Date: 20190118
  Transmission Date: 20190417
  Serious: Yes (Life-Threatening, Hospitalization, Other)
  Sender: FDA-Public Use
  Company Number: US-PFIZER INC-2018537045

PATIENT
  Age: 69 Year
  Sex: Male

DRUGS (4)
  1. DOCETAXEL. [Suspect]
     Active Substance: DOCETAXEL
     Indication: NON-SMALL CELL LUNG CANCER STAGE IIIB
     Dosage: 30 MG/M2, CYCLIC (TOTAL OF SIX CYCLES)(ON DAY 1)
     Dates: start: 201802
  2. DOCETAXEL. [Suspect]
     Active Substance: DOCETAXEL
     Dosage: 30 MG/M2, CYCLIC (TOTAL OF SIX CYCLES) (ON DAY 8)
     Dates: start: 201802
  3. CISPLATIN. [Suspect]
     Active Substance: CISPLATIN
     Indication: NON-SMALL CELL LUNG CANCER STAGE IIIB
     Dosage: 50 MG/M2, CYCLIC (TOTAL OF SIX CYCLES) ( ON DAY 1)
     Dates: start: 201802
  4. CYRAMZA [Suspect]
     Active Substance: RAMUCIRUMAB
     Indication: NON-SMALL CELL LUNG CANCER STAGE IIIB
     Dosage: 10 MG/KG, CYCLIC (A TOTAL OF SIX CYCLES) (EVERY 21 DAYS)
     Dates: start: 201802

REACTIONS (1)
  - Tracheo-oesophageal fistula [Unknown]

NARRATIVE: CASE EVENT DATE: 2018
